FAERS Safety Report 25315904 (Version 1)
Quarter: 2025Q2

REPORT INFORMATION
  Report Type: Spontaneous
  Country: US (occurrence: US)
  Receive Date: 20250515
  Receipt Date: 20250515
  Transmission Date: 20250716
  Serious: No
  Sender: UNITED THERAPEUTICS
  Company Number: US-UNITED THERAPEUTICS-UNT-2025-010665

PATIENT
  Sex: Male

DRUGS (7)
  1. TYVASO DPI [Suspect]
     Active Substance: TREPROSTINIL
     Indication: Pulmonary arterial hypertension
     Dosage: 128 ?G (64 ?G + 64 ?G), QID
  2. TYVASO DPI [Suspect]
     Active Substance: TREPROSTINIL
  3. TYVASO DPI [Suspect]
     Active Substance: TREPROSTINIL
     Indication: Pulmonary arterial hypertension
  4. OFEV [Concomitant]
     Active Substance: NINTEDANIB
     Indication: Idiopathic pulmonary fibrosis
     Dosage: 100 MG, BID
     Dates: start: 201909
  5. OFEV [Concomitant]
     Active Substance: NINTEDANIB
     Indication: Idiopathic interstitial pneumonia
  6. OFEV [Concomitant]
     Active Substance: NINTEDANIB
  7. PEPTO-BISMOL [Concomitant]
     Active Substance: BISMUTH SUBSALICYLATE
     Indication: Diarrhoea

REACTIONS (3)
  - Diarrhoea [Unknown]
  - Brain fog [Unknown]
  - Peripheral swelling [Unknown]
